FAERS Safety Report 5962023-0 (Version None)
Quarter: 2008Q4

REPORT INFORMATION
  Report Type: 
  Country: None (occurrence: None)
  Receive Date: 20081121
  Receipt Date: 20081118
  Transmission Date: 20090506
  Serious: Yes (Life-Threatening, Other)
  Sender: FDA-Public Use
  Company Number: GR-JNJFOC-20080802088

PATIENT
  Sex: Male
  Weight: 92 kg

DRUGS (2)
  1. PALIPERIDONE [Suspect]
     Route: 048
  2. PALIPERIDONE [Suspect]
     Indication: SCHIZOPHRENIA
     Route: 048

REACTIONS (2)
  - SCHIZOPHRENIA, PARANOID TYPE [None]
  - SUICIDE ATTEMPT [None]
